FAERS Safety Report 9132708 (Version 2)
Quarter: 2013Q1

REPORT INFORMATION
  Report Type: Spontaneous
  Country: CN (occurrence: CN)
  Receive Date: 20130301
  Receipt Date: 20130308
  Transmission Date: 20140127
  Serious: Yes (Death, Hospitalization)
  Sender: FDA-Public Use
  Company Number: CN-MILLENNIUM PHARMACEUTICALS, INC.-2013-01407

PATIENT
  Sex: 0

DRUGS (5)
  1. VELCADE [Suspect]
     Indication: PLASMA CELL MYELOMA
     Dosage: 2.3 MG, UNK
     Route: 042
     Dates: start: 20130101
  2. VELCADE [Suspect]
     Dosage: 2.3 MG, UNK
     Route: 042
     Dates: start: 20130123, end: 20130123
  3. PIRARUBICIN HYDROCHLORIDE [Concomitant]
     Dosage: 20 MG, UNK
     Dates: start: 10130123
  4. DEXAMETHASONE SODIUM PHOSPHATE [Concomitant]
     Dosage: 20 MG, UNK
     Dates: start: 20130123
  5. PAMIDRONATE DISODIUM [Concomitant]
     Indication: BONE PAIN

REACTIONS (5)
  - Hyperpyrexia [Fatal]
  - Tachycardia [Fatal]
  - Blood pressure increased [Fatal]
  - Respiratory failure [Fatal]
  - Lung infection [Fatal]
